FAERS Safety Report 16229832 (Version 2)
Quarter: 2019Q2

REPORT INFORMATION
  Report Type: Spontaneous
  Country: BR (occurrence: BR)
  Receive Date: 20190423
  Receipt Date: 20190509
  Transmission Date: 20190711
  Serious: Yes (Death, Hospitalization, Other)
  Sender: FDA-Public Use
  Company Number: BR-B.I. PHARMACEUTICALS,INC./RIDGEFIELD-2019-BI-018014

PATIENT
  Age: 89 Year
  Sex: Male
  Weight: 67 kg

DRUGS (1)
  1. PRADAXA [Suspect]
     Active Substance: DABIGATRAN ETEXILATE MESYLATE
     Indication: ATRIAL FIBRILLATION
     Route: 048
     Dates: start: 20171214

REACTIONS (11)
  - Haemoglobin decreased [Unknown]
  - Septic shock [Fatal]
  - Dyspnoea [Unknown]
  - Lactic acidosis [Fatal]
  - Haematochezia [Recovered/Resolved]
  - Shock haemorrhagic [Unknown]
  - Acute kidney injury [Fatal]
  - Chronic obstructive pulmonary disease [Recovered/Resolved]
  - Altered state of consciousness [Unknown]
  - Haematochezia [Unknown]
  - Diverticulum intestinal [Unknown]

NARRATIVE: CASE EVENT DATE: 20190408
